FAERS Safety Report 4865041-9 (Version None)
Quarter: 2005Q4

REPORT INFORMATION
  Report Type: 
  Country: None (occurrence: None)
  Receive Date: 20051219
  Receipt Date: 20051206
  Transmission Date: 20060501
  Serious: Yes (Hospitalization)
  Sender: FDA-Public Use
  Company Number: 2005131947

PATIENT
  Age: 2 Year
  Sex: Male

DRUGS (1)
  1. ZITHROMAX [Suspect]
     Indication: INFLAMMATION
     Dosage: 600 MG, SINGLE INTERVAL: EVERYDAY, ORAL
     Route: 048
     Dates: start: 20050913, end: 20050915

REACTIONS (4)
  - DRUG HYPERSENSITIVITY [None]
  - MASS [None]
  - PALLOR [None]
  - VASCULITIS [None]
